FAERS Safety Report 8096280-4 (Version None)
Quarter: 2012Q1

REPORT INFORMATION
  Report Type: 
  Country: None (occurrence: None)
  Receive Date: 20120129
  Receipt Date: 20111229
  Transmission Date: 20120608
  Serious: No
  Sender: FDA-Public Use
  Company Number: US-ABBOTT-12P-163-0888763-00

PATIENT
  Sex: Female

DRUGS (1)
  1. HUMIRA [Suspect]
     Indication: RHEUMATOID ARTHRITIS
     Dosage: D/C D/T AES
     Route: 058
     Dates: start: 20111027, end: 20111101

REACTIONS (4)
  - EPISTAXIS [None]
  - PYREXIA [None]
  - FATIGUE [None]
  - CHILLS [None]
